FAERS Safety Report 9064285 (Version 1)
Quarter: 2013Q1

REPORT INFORMATION
  Report Type: Report from Study
  Country: US (occurrence: US)
  Receive Date: 20130130
  Receipt Date: 20130130
  Transmission Date: 20140127
  Serious: No
  Sender: FDA-Public Use
  Company Number: US-ABBOTT-12P-163-0954301-00

PATIENT
  Sex: 0
  Weight: 68.1 kg

DRUGS (2)
  1. HUMIRA 40 MG/ 0.8 ML PRE-FILLED SYRINGE [Suspect]
     Indication: CROHN^S DISEASE
     Route: 058
     Dates: start: 201204, end: 201206
  2. IMMURAN [Concomitant]
     Indication: CROHN^S DISEASE

REACTIONS (1)
  - Rash [Not Recovered/Not Resolved]
